FAERS Safety Report 16860423 (Version 2)
Quarter: 2019Q4

REPORT INFORMATION
  Report Type: Spontaneous
  Country: JP (occurrence: JP)
  Receive Date: 20190927
  Receipt Date: 20191114
  Transmission Date: 20200122
  Serious: Yes (Hospitalization)
  Sender: FDA-Public Use
  Company Number: JP-ASTRAZENECA-2019SF34423

PATIENT
  Age: 74 Year
  Sex: Male

DRUGS (5)
  1. ALOGLIPTIN BENZOATE [Concomitant]
     Active Substance: ALOGLIPTIN BENZOATE
  2. PITAVASTATIN CALCIUM [Concomitant]
     Active Substance: PITAVASTATIN CALCIUM
  3. NIFEDIPINE. [Concomitant]
     Active Substance: NIFEDIPINE
     Route: 065
  4. NEXIUM [Suspect]
     Active Substance: ESOMEPRAZOLE MAGNESIUM
     Route: 048
  5. OLMESARTAN [Concomitant]
     Active Substance: OLMESARTAN

REACTIONS (1)
  - Cholera [Recovered/Resolved]
